FAERS Safety Report 6610772-3 (Version None)
Quarter: 2010Q1

REPORT INFORMATION
  Report Type: 
  Country: None (occurrence: None)
  Receive Date: 20100302
  Receipt Date: 20100222
  Transmission Date: 20100710
  Serious: Yes (Life-Threatening)
  Sender: FDA-Public Use
  Company Number: B0635230A

PATIENT
  Sex: Male

DRUGS (6)
  1. NIMBEX [Suspect]
     Route: 042
     Dates: start: 20100206, end: 20100207
  2. AUGMENTIN [Suspect]
     Indication: DRUG USE FOR UNKNOWN INDICATION
     Route: 042
     Dates: start: 20100206
  3. SUFENTANIL [Suspect]
     Route: 042
     Dates: start: 20100206, end: 20100207
  4. RED CELLS TRANSFUSION [Concomitant]
     Dosage: 1UNIT FOUR TIMES PER DAY
     Route: 042
     Dates: start: 20100206, end: 20100206
  5. PLATELETS [Concomitant]
     Dosage: 8UNIT PER DAY
     Route: 042
     Dates: start: 20100206
  6. FRESH FROZEN PLASMA [Concomitant]
     Dosage: 1UNIT SIX TIMES PER DAY
     Route: 042
     Dates: start: 20100206, end: 20100206

REACTIONS (2)
  - CARDIO-RESPIRATORY ARREST [None]
  - RASH [None]
